FAERS Safety Report 8694821 (Version 2)
Quarter: 2012Q4

REPORT INFORMATION
  Report Type: 
  Country: CZ (occurrence: CZ)
  Receive Date: 20120731
  Receipt Date: 20120924
  Transmission Date: 20130627
  Serious: Yes (Hospitalization, Other)
  Sender: FDA-Public Use
  Company Number: CZ-009507513-1207CZE011118

PATIENT
  Age: 63 Year
  Sex: Female
  Weight: 67 kg

DRUGS (15)
  1. EMEND [Suspect]
     Indication: PROPHYLAXIS OF NAUSEA AND VOMITING
     Dosage: 125 mg, Once
     Route: 048
     Dates: start: 20120620, end: 20120620
  2. EMEND [Suspect]
     Dosage: 80 mg, qd
     Route: 048
     Dates: start: 20120621, end: 20120622
  3. CORTICOSTEROIDS (UNSPECIFIED) [Concomitant]
  4. ONDANSETRON [Concomitant]
     Dosage: 12 mg, UNK
     Route: 040
     Dates: start: 20120620, end: 20120622
  5. DEXONA INJECTION [Concomitant]
     Dosage: 12 mg, UNK
     Route: 040
     Dates: start: 20120620, end: 20120622
  6. DOXORUBICIN [Concomitant]
     Dosage: 82mg/250ml saline solution/30min
     Route: 041
     Dates: start: 20120620, end: 20120622
  7. MESNA [Concomitant]
     Dosage: 2000 mg/100ml saline solution /15min, UNK
     Route: 041
     Dates: start: 20120620, end: 20120622
  8. MESNA [Concomitant]
     Dosage: 1200 mg/100ml saline solution /15min, UNK
     Route: 041
     Dates: start: 20120620, end: 20120622
  9. IFOSFAMIDE [Concomitant]
     Dosage: 8230 mg divided3x1000ml FR i.v.inf. (each infusion for 8 hours, in total 24hours) + Mesna 2000 , UNK
     Route: 041
     Dates: start: 20120620, end: 20120622
  10. BETALOC [Concomitant]
     Dosage: 0.5 DF, qd
  11. CORDARONE [Concomitant]
     Dosage: 200 mg, qd
  12. POTASSIUM CHLORIDE [Concomitant]
     Dosage: 0-1-0
  13. OXYCONTIN [Concomitant]
     Dosage: 20 mg, bid
  14. FRAXIPARINE [Concomitant]
     Dosage: 0.8 ml, at 7PM
     Route: 058
  15. FRAXIPARINE [Concomitant]
     Dosage: 0.6 ml, at 7a.m
     Route: 058

REACTIONS (1)
  - Acute psychosis [Recovered/Resolved]
